FAERS Safety Report 24438326 (Version 1)
Quarter: 2024Q4

REPORT INFORMATION
  Report Type: Spontaneous
  Country: US (occurrence: US)
  Receive Date: 20241015
  Receipt Date: 20241015
  Transmission Date: 20250115
  Serious: No
  Sender: PHARMALEX US CORPORATION
  Company Number: US-PharmaLex US Corporation-2163074

PATIENT
  Sex: Female

DRUGS (1)
  1. CYTALUX [Suspect]
     Active Substance: PAFOLACIANINE SODIUM
     Indication: Product used for unknown indication
     Dates: start: 20240919, end: 20240919

REACTIONS (5)
  - Chest pain [Unknown]
  - Abdominal discomfort [Unknown]
  - Unresponsive to stimuli [Unknown]
  - Dyspepsia [Unknown]
  - Flatulence [Unknown]
